FAERS Safety Report 10034105 (Version 1)
Quarter: 2014Q1

REPORT INFORMATION
  Report Type: Spontaneous
  Country: US (occurrence: None)
  Receive Date: 20140321
  Receipt Date: 20140321
  Transmission Date: 20141002
  Serious: Yes (Death, Hospitalization)
  Sender: FDA-Public Use
  Company Number: 2014P1002214

PATIENT
  Age: 59 Year
  Sex: Female

DRUGS (1)
  1. ISONIAZID [Suspect]
     Indication: LATENT TUBERCULOSIS

REACTIONS (12)
  - Areflexia [None]
  - Sensory loss [None]
  - Motor dysfunction [None]
  - Anaemia [None]
  - Renal failure [None]
  - Aneurysm [None]
  - Vasculitis necrotising [None]
  - Renal failure [None]
  - Hypotension [None]
  - Unresponsive to stimuli [None]
  - Peritoneal haemorrhage [None]
  - Hepatic haematoma [None]
